FAERS Safety Report 25813613 (Version 1)
Quarter: 2025Q3

REPORT INFORMATION
  Report Type: Spontaneous
  Country: GB (occurrence: GB)
  Receive Date: 20250917
  Receipt Date: 20250917
  Transmission Date: 20251021
  Serious: Yes (Other)
  Sender: GILEAD
  Company Number: GB-GILEAD-2025-0727838

PATIENT
  Age: 55 Year
  Sex: Female

DRUGS (1)
  1. YESCARTA [Suspect]
     Active Substance: AXICABTAGENE CILOLEUCEL
     Indication: Diffuse large B-cell lymphoma recurrent
     Route: 065
     Dates: start: 20230516

REACTIONS (7)
  - B-cell aplasia [Unknown]
  - Lower respiratory tract infection [Unknown]
  - Cytopenia [Not Recovered/Not Resolved]
  - Hypogammaglobulinaemia [Unknown]
  - Infection [Not Recovered/Not Resolved]
  - COVID-19 [Unknown]
  - Bacterial infection [Unknown]

NARRATIVE: CASE EVENT DATE: 20241001
